FAERS Safety Report 9906804 (Version 1)
Quarter: 2014Q1

REPORT INFORMATION
  Report Type: Spontaneous
  Country: DK (occurrence: GB)
  Receive Date: 20140218
  Receipt Date: 20140218
  Transmission Date: 20141002
  Serious: Yes (Hospitalization)
  Sender: FDA-Public Use
  Company Number: GB-FRI-1000054201

PATIENT
  Age: 67 Year
  Sex: Male

DRUGS (2)
  1. CITALOPRAM [Suspect]
     Indication: DEPRESSION
     Dosage: 20 MG
     Route: 048
     Dates: start: 1996, end: 201312
  2. RYTHMODAN [Interacting]
     Indication: CHEST PAIN
     Dosage: 500 MG
     Dates: start: 2008, end: 2010

REACTIONS (3)
  - Urinary retention [Recovered/Resolved]
  - Drug interaction [Recovered/Resolved]
  - Chest pain [Unknown]
